FAERS Safety Report 24399453 (Version 1)
Quarter: 2024Q4

REPORT INFORMATION
  Report Type: Spontaneous
  Country: CN (occurrence: CN)
  Receive Date: 20241005
  Receipt Date: 20241005
  Transmission Date: 20250115
  Serious: Yes (Other)
  Sender: ABBVIE
  Company Number: CN-LUNDBECK-DKLU4004857

PATIENT
  Age: 62 Year
  Sex: Female

DRUGS (2)
  1. LEXAPRO [Suspect]
     Active Substance: ESCITALOPRAM OXALATE
     Indication: Depression
     Dosage: 20 MILLIGRAM
     Route: 048
     Dates: start: 20240818, end: 20240912
  2. SEROQUEL [Suspect]
     Active Substance: QUETIAPINE FUMARATE
     Indication: Psychotic symptom
     Dosage: 0.1 GRAM
     Route: 048
     Dates: start: 20240818, end: 20240912

REACTIONS (1)
  - Hypertriglyceridaemia [Unknown]

NARRATIVE: CASE EVENT DATE: 20240911
